FAERS Safety Report 26073218 (Version 1)
Quarter: 2025Q4

REPORT INFORMATION
  Report Type: Spontaneous
  Country: GB (occurrence: GB)
  Receive Date: 20251121
  Receipt Date: 20251121
  Transmission Date: 20260118
  Serious: Yes (Other)
  Sender: TEVA
  Company Number: None

PATIENT
  Age: 86 Year
  Sex: Male
  Weight: 78 kg

DRUGS (1)
  1. DIAZEPAM [Suspect]
     Active Substance: DIAZEPAM
     Indication: Cardiac pacemaker replacement
     Route: 065
     Dates: start: 20251111, end: 20251112

REACTIONS (1)
  - Delayed recovery from anaesthesia [Not Recovered/Not Resolved]

NARRATIVE: CASE EVENT DATE: 20251111
